FAERS Safety Report 16311259 (Version 1)
Quarter: 2019Q2

REPORT INFORMATION
  Report Type: Spontaneous
  Country: US (occurrence: US)
  Receive Date: 20190514
  Receipt Date: 20190514
  Transmission Date: 20190711
  Serious: Yes (Other)
  Sender: FDA-Public Use
  Company Number: US-ASTRAZENECA-2019SE66425

PATIENT
  Age: 454 Month
  Sex: Female
  Weight: 125.2 kg

DRUGS (25)
  1. OMEPRAZOLE. [Suspect]
     Active Substance: OMEPRAZOLE
     Indication: GASTROOESOPHAGEAL REFLUX DISEASE
     Route: 048
     Dates: start: 201312, end: 201704
  2. OMEPRAZOLE. [Suspect]
     Active Substance: OMEPRAZOLE
     Indication: GASTROOESOPHAGEAL REFLUX DISEASE
     Route: 048
     Dates: start: 201704
  3. HYDROCODONE BITARTRATE AND ACETAMINOPHEN [Concomitant]
     Active Substance: ACETAMINOPHEN\HYDROCODONE BITARTRATE
  4. ZANTAC [Concomitant]
     Active Substance: RANITIDINE HYDROCHLORIDE
  5. FUROSEMIDE. [Concomitant]
     Active Substance: FUROSEMIDE
  6. LEVAQUIN [Concomitant]
     Active Substance: LEVOFLOXACIN
  7. LEVOFLOXACIN. [Concomitant]
     Active Substance: LEVOFLOXACIN
  8. METOPROLOL. [Concomitant]
     Active Substance: METOPROLOL
  9. TIZANIDINE. [Concomitant]
     Active Substance: TIZANIDINE
  10. ASPIRIN. [Concomitant]
     Active Substance: ASPIRIN
  11. DIOVAN [Concomitant]
     Active Substance: VALSARTAN
  12. GABAPENTIN. [Concomitant]
     Active Substance: GABAPENTIN
  13. LOSARTAN. [Concomitant]
     Active Substance: LOSARTAN
  14. INDOMETHACIN. [Concomitant]
     Active Substance: INDOMETHACIN
  15. PREVACID [Suspect]
     Active Substance: LANSOPRAZOLE
     Indication: GASTROOESOPHAGEAL REFLUX DISEASE
     Route: 065
     Dates: start: 200701, end: 200910
  16. ALLOPURINOL. [Concomitant]
     Active Substance: ALLOPURINOL
  17. BENADRYL [Concomitant]
     Active Substance: DIPHENHYDRAMINE HYDROCHLORIDE
  18. PREVACID [Suspect]
     Active Substance: LANSOPRAZOLE
     Indication: GASTROOESOPHAGEAL REFLUX DISEASE
     Dosage: GENERIC
     Route: 065
     Dates: start: 200912, end: 201311
  19. LIPITOR [Concomitant]
     Active Substance: ATORVASTATIN CALCIUM
  20. DOXYCYCLINE. [Concomitant]
     Active Substance: DOXYCYCLINE
  21. CIPROFLOXACIN. [Concomitant]
     Active Substance: CIPROFLOXACIN
  22. SIMVASTATIN. [Concomitant]
     Active Substance: SIMVASTATIN
  23. TORSEMIDE. [Concomitant]
     Active Substance: TORSEMIDE
  24. ACYCLOVIR. [Concomitant]
     Active Substance: ACYCLOVIR
  25. AZITHROMYCIN ANHYDROUS. [Concomitant]
     Active Substance: AZITHROMYCIN ANHYDROUS

REACTIONS (2)
  - Chronic kidney disease [Not Recovered/Not Resolved]
  - Renal failure [Unknown]

NARRATIVE: CASE EVENT DATE: 201411
